FAERS Safety Report 23660755 (Version 4)
Quarter: 2024Q4

REPORT INFORMATION
  Report Type: Report from Study
  Country: CA (occurrence: CA)
  Receive Date: 20240322
  Receipt Date: 20241213
  Transmission Date: 20250114
  Serious: Yes (Other)
  Sender: JOHNSON AND JOHNSON
  Company Number: CA-JNJFOC-20240222914

PATIENT
  Age: 31 Year
  Sex: Female

DRUGS (1)
  1. REMICADE [Suspect]
     Active Substance: INFLIXIMAB
     Indication: Crohn^s disease
     Dosage: INFUSIONS# 6?EXPIRY: AUG-2026
     Route: 041
     Dates: start: 20210603

REACTIONS (9)
  - Hysterectomy [Recovered/Resolved]
  - Crohn^s disease [Recovered/Resolved]
  - Intestinal haemorrhage [Not Recovered/Not Resolved]
  - Lower respiratory tract infection [Not Recovered/Not Resolved]
  - Rectal discharge [Not Recovered/Not Resolved]
  - Product dose omission issue [Unknown]
  - Postoperative wound infection [Unknown]
  - Therapeutic response decreased [Unknown]
  - Neuralgia [Unknown]

NARRATIVE: CASE EVENT DATE: 20240301
